FAERS Safety Report 9708774 (Version 3)
Quarter: 2014Q2

REPORT INFORMATION
  Report Type: Spontaneous
  Country: CA (occurrence: None)
  Receive Date: 20131122
  Receipt Date: 20140619
  Transmission Date: 20141212
  Serious: Yes (Hospitalization, Other)
  Sender: FDA-Public Use
  Company Number: ADR-2013-02122

PATIENT
  Sex: Male

DRUGS (2)
  1. LIORESAL INTRATHECAL (BACLOFEN INJECTION) 2000MCG/ML [Suspect]
     Dosage: 100 MCG/DAY
  2. ORAL BACLOFEN [Suspect]

REACTIONS (6)
  - Somnolence [None]
  - Delirium [None]
  - Alcohol abuse [None]
  - Drug abuse [None]
  - Urinary tract infection [None]
  - Mental status changes [None]
